FAERS Safety Report 7628636-5 (Version None)
Quarter: 2011Q3

REPORT INFORMATION
  Report Type: 
  Country: None (occurrence: None)
  Receive Date: 20110711
  Receipt Date: 20110623
  Transmission Date: 20111222
  Serious: Yes (Hospitalization)
  Sender: FDA-Public Use
  Company Number: 2011PROUSA00388

PATIENT
  Age: 73 Year
  Sex: Male
  Weight: 127.8 kg

DRUGS (9)
  1. PROVENGE [Suspect]
     Indication: PROSTATE CANCER METASTATIC
     Dosage: 250 ML, SINGLE, INTRAVENOUS
     Route: 042
     Dates: start: 20110512, end: 20110512
  2. LASIX [Concomitant]
  3. COUMADIN /00014802/ (WARFARIN SODIUM) [Concomitant]
  4. ZESTRIL [Concomitant]
  5. GLUCOPHAGE [Concomitant]
  6. ALDACTONE	/00006201/ (SPIRONOLACTONE) [Concomitant]
  7. AMIODARONE HCL [Concomitant]
  8. GLYBURIDE [Concomitant]
  9. GLUCOTROL [Concomitant]

REACTIONS (7)
  - DYSPHAGIA [None]
  - MUSCULAR WEAKNESS [None]
  - DIARRHOEA [None]
  - BLOOD ALKALINE PHOSPHATASE INCREASED [None]
  - ONYCHOMYCOSIS [None]
  - CELLULITIS [None]
  - POLLAKIURIA [None]
